FAERS Safety Report 8336984-9 (Version None)
Quarter: 2012Q2

REPORT INFORMATION
  Report Type: 
  Country: None (occurrence: None)
  Receive Date: 20120501
  Receipt Date: 20120417
  Transmission Date: 20120825
  Serious: Yes (Other)
  Sender: FDA-Public Use
  Company Number: 2012-00657

PATIENT
  Age: 20 Year
  Sex: Female

DRUGS (3)
  1. QUETIAPINE [Suspect]
     Indication: PRODUCT USED FOR UNKNOWN INDICATION
  2. SERTRALINE HYDROCHLORIDE [Concomitant]
  3. CLOZAPINE [Suspect]
     Indication: PRODUCT USED FOR UNKNOWN INDICATION
     Dosage: 12.5 MG (12.5 MG)
     Dates: start: 20120405, end: 20120407

REACTIONS (3)
  - DRUG INTERACTION [None]
  - HYPOTENSION [None]
  - TACHYCARDIA [None]
